FAERS Safety Report 4289817-4 (Version None)
Quarter: 2004Q1

REPORT INFORMATION
  Report Type: 
  Country: None (occurrence: None)
  Receive Date: 20040210
  Receipt Date: 20040204
  Transmission Date: 20041129
  Serious: Yes (Other)
  Sender: FDA-Public Use
  Company Number: US-BRISTOL-MYERS SQUIBB COMPANY-12496238

PATIENT
  Age: 68 Year
  Sex: Female

DRUGS (2)
  1. GATIFLOXACIN TABS [Suspect]
     Indication: URINARY TRACT INFECTION
  2. MICRONASE [Interacting]
     Indication: DIABETES MELLITUS
     Dosage: DISCONTINUED AND RESTARTED DURING HOSPITALIZATION

REACTIONS (2)
  - DRUG INTERACTION [None]
  - HYPOGLYCAEMIA [None]
